FAERS Safety Report 7796265-9 (Version None)
Quarter: 2011Q4

REPORT INFORMATION
  Report Type: 
  Country: None (occurrence: None)
  Receive Date: 20111004
  Receipt Date: 20110927
  Transmission Date: 20120403
  Serious: Yes (Hospitalization)
  Sender: FDA-Public Use
  Company Number: GB-RB-032357-11

PATIENT
  Age: 88 Year
  Sex: Female

DRUGS (12)
  1. BUPRENORPHINE [Suspect]
     Dosage: UNKNOWN EXACT DOSING DETAILS
     Route: 062
  2. DIAZEPAM [Suspect]
     Indication: INSOMNIA
     Dosage: UNKNOWN DOSING DETAILS- TAKES AS NECESSARY
     Route: 048
  3. MIRTAZAPINE [Concomitant]
     Indication: PRODUCT USED FOR UNKNOWN INDICATION
     Route: 065
  4. CACICHEW D3 [Concomitant]
     Indication: PRODUCT USED FOR UNKNOWN INDICATION
     Route: 065
  5. DIAZEPAM [Suspect]
     Indication: ANXIETY
     Dosage: UNKNOWN DOSING DETAILS- TAKES AS NECESSARY
     Route: 048
  6. ATORVASTATIN [Concomitant]
     Indication: PRODUCT USED FOR UNKNOWN INDICATION
     Route: 065
  7. OMEPRAZOLE [Concomitant]
     Indication: PRODUCT USED FOR UNKNOWN INDICATION
     Route: 065
  8. PERINDOPRIL ERBUMINE [Concomitant]
     Indication: PRODUCT USED FOR UNKNOWN INDICATION
     Route: 065
  9. PREDNISOLONE [Concomitant]
     Indication: PRODUCT USED FOR UNKNOWN INDICATION
     Route: 065
  10. TOLTERODINE TARTRATE [Concomitant]
     Indication: PRODUCT USED FOR UNKNOWN INDICATION
     Route: 065
  11. BUPRENORPHINE [Suspect]
     Indication: PAIN
     Dosage: DOSAGE WAS 1/ 1 HOURS
     Route: 062
  12. ACETAMINOPHEN AND CODEINE PHOSPHATE [Concomitant]
     Indication: PRODUCT USED FOR UNKNOWN INDICATION
     Route: 065

REACTIONS (1)
  - DEPRESSED LEVEL OF CONSCIOUSNESS [None]
